FAERS Safety Report 15329592 (Version 1)
Quarter: 2018Q3

REPORT INFORMATION
  Report Type: Report from Study
  Country: CA (occurrence: CA)
  Receive Date: 20180829
  Receipt Date: 20180829
  Transmission Date: 20181010
  Serious: Yes (Other)
  Sender: FDA-Public Use
  Company Number: CA-ROCHE-2094830

PATIENT
  Age: 77 Year
  Sex: Male

DRUGS (10)
  1. FOLIC ACID. [Concomitant]
     Active Substance: FOLIC ACID
  2. METHOTREXATE. [Concomitant]
     Active Substance: METHOTREXATE
  3. ACETAMINOPHEN. [Concomitant]
     Active Substance: ACETAMINOPHEN
     Indication: PREMEDICATION
     Route: 048
     Dates: start: 20131204, end: 20131207
  4. PREDNISONE. [Suspect]
     Active Substance: PREDNISONE
     Indication: PRODUCT USED FOR UNKNOWN INDICATION
     Route: 065
  5. DIPHENHYDRAMINE HCL [Concomitant]
     Active Substance: DIPHENHYDRAMINE HYDROCHLORIDE
     Indication: PREMEDICATION
     Route: 048
     Dates: start: 20131204, end: 20131207
  6. LASIX [Concomitant]
     Active Substance: FUROSEMIDE
  7. RITUXAN [Suspect]
     Active Substance: RITUXIMAB
     Indication: RHEUMATOID ARTHRITIS
     Dosage: 30/OCT/2017, MOST RECENT DOSE
     Route: 042
     Dates: start: 20131204
  8. RAMIPRIL. [Concomitant]
     Active Substance: RAMIPRIL
     Indication: BLOOD PRESSURE MEASUREMENT
  9. PREDNISONE. [Concomitant]
     Active Substance: PREDNISONE
  10. METHYLPREDNISOLONE. [Concomitant]
     Active Substance: METHYLPREDNISOLONE
     Indication: PREMEDICATION
     Route: 042
     Dates: start: 20131204, end: 20131207

REACTIONS (9)
  - Ingrown hair [Not Recovered/Not Resolved]
  - Abdominal abscess [Unknown]
  - Oxygen saturation decreased [Unknown]
  - Tinnitus [Unknown]
  - Neoplasm skin [Recovered/Resolved]
  - Suture related complication [Not Recovered/Not Resolved]
  - Tremor [Unknown]
  - Postoperative wound infection [Recovered/Resolved]
  - Blood pressure systolic increased [Unknown]

NARRATIVE: CASE EVENT DATE: 2018
